FAERS Safety Report 19276509 (Version 1)
Quarter: 2021Q2

REPORT INFORMATION
  Report Type: Spontaneous
  Country: CN (occurrence: CN)
  Receive Date: 20210519
  Receipt Date: 20210519
  Transmission Date: 20210717
  Serious: Yes (Other)
  Sender: FDA-Public Use
  Company Number: CN-PFIZER INC-2021517416

PATIENT
  Age: 2 Year
  Sex: Male
  Weight: 15 kg

DRUGS (3)
  1. GLUCOSE [Concomitant]
     Active Substance: DEXTROSE
     Indication: BRONCHITIS
     Dosage: 50.000 ML, 2X/DAY
     Route: 041
     Dates: start: 20210502, end: 20210504
  2. XIN TAI LIN [Concomitant]
     Indication: BRONCHITIS
     Dosage: 1.500 G, 1X/DAY
     Route: 041
     Dates: start: 20210502, end: 20210504
  3. SOLU?MEDROL [Suspect]
     Active Substance: METHYLPREDNISOLONE SODIUM SUCCINATE
     Indication: BRONCHITIS
     Dosage: 17.000 MG, 1X/DAY
     Route: 041
     Dates: start: 20210502, end: 20210504

REACTIONS (2)
  - Pruritus [Recovered/Resolved]
  - Rash [Recovering/Resolving]

NARRATIVE: CASE EVENT DATE: 20210504
